FAERS Safety Report 8063404-4 (Version None)
Quarter: 2012Q1

REPORT INFORMATION
  Report Type: 
  Country: None (occurrence: None)
  Receive Date: 20120117
  Receipt Date: 20120103
  Transmission Date: 20120608
  Serious: Yes (Death)
  Sender: FDA-Public Use
  Company Number: B0773382A

PATIENT
  Age: 54 Year
  Sex: Male

DRUGS (3)
  1. HYDROCODONE BITARTRATE + ACETAMINOPHEN [Suspect]
  2. CYCLOBENZAPRINE HCL [Suspect]
  3. ROPINIROLE HYDROCHLORIDE (FORMULATION UNKNOWN) (ROPINIROLE HCL) (GENER [Suspect]
     Dosage: ORAL
     Route: 048

REACTIONS (1)
  - COMPLETED SUICIDE [None]
